FAERS Safety Report 16035183 (Version 1)
Quarter: 2019Q1

REPORT INFORMATION
  Report Type: Spontaneous
  Country: TR (occurrence: TR)
  Receive Date: 20190305
  Receipt Date: 20190305
  Transmission Date: 20190418
  Serious: Yes (Other)
  Sender: FDA-Public Use
  Company Number: TR-ALVOGEN-2019-ALVOGEN-098605

PATIENT
  Age: 5 Year
  Sex: Male
  Weight: 20 kg

DRUGS (2)
  1. FLUOXETINE [Suspect]
     Active Substance: FLUOXETINE HYDROCHLORIDE
     Indication: SEPARATION ANXIETY DISORDER
  2. RISPERIDONE. [Interacting]
     Active Substance: RISPERIDONE
     Indication: OPPOSITIONAL DEFIANT DISORDER

REACTIONS (4)
  - Dystonia [Recovered/Resolved]
  - Drug level increased [Recovered/Resolved]
  - Off label use [Unknown]
  - Drug interaction [Recovered/Resolved]
